FAERS Safety Report 9084423 (Version 1)
Quarter: 2013Q1

REPORT INFORMATION
  Report Type: Spontaneous
  Country: US (occurrence: US)
  Receive Date: 20130130
  Receipt Date: 20130130
  Transmission Date: 20140127
  Serious: No
  Sender: FDA-Public Use
  Company Number: US-ABBOTT-12P-163-0971648-00

PATIENT
  Age: 61 Year
  Sex: Male

DRUGS (4)
  1. HUMIRA 40 MG/ 0.8 ML PRE-FILLED SYRINGE [Suspect]
     Indication: CROHN^S DISEASE
     Dosage: ONE TIME DOSE
     Route: 058
     Dates: start: 20120719, end: 20120719
  2. HUMIRA 40 MG/ 0.8 ML PRE-FILLED SYRINGE [Suspect]
     Dosage: ONE TIME DOSE
     Route: 058
     Dates: start: 20120802, end: 20120802
  3. PREDNISONE [Concomitant]
     Indication: CROHN^S DISEASE
     Dosage: PREDNISONE TAPER
  4. MERCAPTOPURINE [Concomitant]
     Indication: CROHN^S DISEASE

REACTIONS (4)
  - Nephrolithiasis [Recovering/Resolving]
  - Lobar pneumonia [Recovering/Resolving]
  - Flank pain [Recovered/Resolved]
  - Kidney infection [Recovering/Resolving]
